FAERS Safety Report 14535775 (Version 6)
Quarter: 2020Q2

REPORT INFORMATION
  Report Type: Report from Study
  Country: CO (occurrence: CO)
  Receive Date: 20180215
  Receipt Date: 20200504
  Transmission Date: 20200713
  Serious: Yes (Hospitalization, Other)
  Sender: FDA-Public Use
  Company Number: CO-INCYTE CORPORATION-2017IN009218

PATIENT

DRUGS (4)
  1. JAKAVI [Suspect]
     Active Substance: RUXOLITINIB
     Dosage: 45 MG, QD
     Route: 048
  2. ACETYLSALICYLIC ACID [Concomitant]
     Active Substance: ASPIRIN
     Indication: PRODUCT USED FOR UNKNOWN INDICATION
     Dosage: UNK
     Route: 065
  3. JAKAVI [Suspect]
     Active Substance: RUXOLITINIB
     Dosage: 2 DF, QD
     Route: 065
  4. JAKAVI [Suspect]
     Active Substance: RUXOLITINIB
     Indication: POLYCYTHAEMIA VERA
     Dosage: 30 MG, QD
     Route: 048
     Dates: start: 20170328

REACTIONS (22)
  - Haemoglobin increased [Recovering/Resolving]
  - Musculoskeletal stiffness [Unknown]
  - Skin haemorrhage [Unknown]
  - Platelet count increased [Recovering/Resolving]
  - Haemorrhage [Unknown]
  - Paralysis [Unknown]
  - Gait disturbance [Recovered/Resolved]
  - Restless legs syndrome [Unknown]
  - Product prescribing error [Unknown]
  - Inappropriate schedule of product administration [Unknown]
  - Epistaxis [Unknown]
  - Hepatomegaly [Unknown]
  - Feeling abnormal [Unknown]
  - Red blood cell count increased [Recovering/Resolving]
  - Hypoaesthesia [Unknown]
  - Headache [Unknown]
  - Pain in extremity [Unknown]
  - Splenomegaly [Unknown]
  - Intervertebral disc calcification [Unknown]
  - Hypokinesia [Unknown]
  - Back pain [Unknown]
  - White blood cell count increased [Recovering/Resolving]

NARRATIVE: CASE EVENT DATE: 20170328
